FAERS Safety Report 21195249 (Version 1)
Quarter: 2022Q3

REPORT INFORMATION
  Report Type: Spontaneous
  Country: US (occurrence: None)
  Receive Date: 20220809
  Receipt Date: 20220809
  Transmission Date: 20221027
  Serious: No
  Sender: FDA-Public Use
  Company Number: None

PATIENT
  Age: 76 Year
  Sex: Female
  Weight: 119.29 kg

DRUGS (1)
  1. SKYRIZI [Suspect]
     Active Substance: RISANKIZUMAB-RZAA
     Indication: Psoriasis
     Dosage: OTHER FREQUENCY : WEEK 0, WEEK 4;?
     Route: 058
     Dates: start: 202109

REACTIONS (6)
  - Sinus disorder [None]
  - Headache [None]
  - Chills [None]
  - Pyrexia [None]
  - Infection [None]
  - Vomiting [None]
